FAERS Safety Report 18078452 (Version 1)
Quarter: 2020Q3

REPORT INFORMATION
  Report Type: Spontaneous
  Country: RS (occurrence: RS)
  Receive Date: 20200728
  Receipt Date: 20200728
  Transmission Date: 20201103
  Serious: Yes (Other)
  Sender: FDA-Public Use
  Company Number: RS-ROCHE-2646913

PATIENT
  Sex: Male

DRUGS (4)
  1. VEMURAFENIB. [Suspect]
     Active Substance: VEMURAFENIB
     Dosage: 2ND CYCLE, REDUCED DOSE 2X480 MG
     Route: 065
  2. VEMURAFENIB. [Suspect]
     Active Substance: VEMURAFENIB
     Indication: METASTATIC MALIGNANT MELANOMA
     Dosage: 2 X 960 MG
     Route: 065
     Dates: start: 20180620
  3. VEMURAFENIB. [Suspect]
     Active Substance: VEMURAFENIB
     Dosage: REDUCED DOSE 2X720 MG
     Route: 065
  4. VEMURAFENIB. [Suspect]
     Active Substance: VEMURAFENIB
     Dosage: AFTER SYMPTOM RESOLUTION UP TO GRADE 1, THERAPY WAS CONTINUED, WITH A DOSE REDUCTION OF 50% DUE TO T
     Route: 065

REACTIONS (15)
  - Palmar-plantar erythrodysaesthesia syndrome [Unknown]
  - Lip injury [Unknown]
  - Toxic skin eruption [Recovered/Resolved]
  - Paraesthesia [Unknown]
  - Metastases to central nervous system [Unknown]
  - Papule [Unknown]
  - Photosensitivity reaction [Unknown]
  - Swelling [Unknown]
  - Lip ulceration [Unknown]
  - Mucosal inflammation [Unknown]
  - Lip swelling [Recovered/Resolved]
  - Oedema peripheral [Unknown]
  - Skin exfoliation [Unknown]
  - Arthralgia [Unknown]
  - Headache [Unknown]

NARRATIVE: CASE EVENT DATE: 20180626
